FAERS Safety Report 15126633 (Version 1)
Quarter: 2018Q3

REPORT INFORMATION
  Report Type: Spontaneous
  Country: US (occurrence: US)
  Receive Date: 20180614
  Receipt Date: 20180614
  Transmission Date: 20181010
  Serious: Yes (Other)
  Sender: FDA-Public Use
  Company Number: None

PATIENT
  Age: 48 Year
  Sex: Female

DRUGS (1)
  1. OXYCODONE [Suspect]
     Active Substance: OXYCODONE
     Route: 048

REACTIONS (3)
  - Product substitution issue [None]
  - Drug dispensing error [None]
  - Drug hypersensitivity [None]

NARRATIVE: CASE EVENT DATE: 20180605
